FAERS Safety Report 8975149 (Version 1)
Quarter: 2012Q4

REPORT INFORMATION
  Report Type: 
  Country: US (occurrence: US)
  Receive Date: 20121219
  Receipt Date: 20121219
  Transmission Date: 20130627
  Serious: No
  Sender: FDA-Public Use
  Company Number: US-AMGEN-USASP2012072668

PATIENT
  Age: 43 Year
  Sex: Male
  Weight: 126.53 kg

DRUGS (1)
  1. PROLIA [Suspect]
     Indication: OSTEOPOROSIS
     Dosage: 60 mg, q6mo
     Route: 030
     Dates: start: 20121102

REACTIONS (2)
  - Musculoskeletal pain [Recovered/Resolved]
  - Incorrect route of drug administration [Unknown]
